FAERS Safety Report 22707923 (Version 2)
Quarter: 2024Q1

REPORT INFORMATION
  Report Type: Spontaneous
  Country: US (occurrence: US)
  Receive Date: 20230714
  Receipt Date: 20240109
  Transmission Date: 20240410
  Serious: No
  Sender: FDA-Public Use
  Company Number: US-SA-SAC20230710001351

PATIENT

DRUGS (2)
  1. ALDURAZYME [Suspect]
     Active Substance: LARONIDASE
     Indication: Immunodeficiency
     Dosage: 43.5 MG, QW
     Route: 065
     Dates: start: 202202
  2. ALDURAZYME [Suspect]
     Active Substance: LARONIDASE
     Indication: Skin infection

REACTIONS (3)
  - Weight increased [Unknown]
  - Influenza [Unknown]
  - Product use in unapproved indication [Unknown]

NARRATIVE: CASE EVENT DATE: 20220201
